FAERS Safety Report 22381439 (Version 1)
Quarter: 2023Q2

REPORT INFORMATION
  Report Type: Spontaneous
  Country: CN (occurrence: CN)
  Receive Date: 20230530
  Receipt Date: 20230530
  Transmission Date: 20230722
  Serious: Yes (Death, Other)
  Sender: FDA-Public Use
  Company Number: CN-AMGEN-CHNSP2023089210

PATIENT

DRUGS (2)
  1. FILGRASTIM [Suspect]
     Active Substance: FILGRASTIM
     Indication: Neutropenia
     Route: 065
  2. FILGRASTIM [Suspect]
     Active Substance: FILGRASTIM
     Indication: Aplastic anaemia

REACTIONS (12)
  - Death [Fatal]
  - Haemorrhage intracranial [Fatal]
  - Pulmonary haemorrhage [Fatal]
  - Infection [Fatal]
  - Gastrointestinal haemorrhage [Fatal]
  - Aplastic anaemia [Unknown]
  - Neutropenia [Unknown]
  - Myelodysplastic syndrome [Unknown]
  - Off label use [Unknown]
  - Therapy non-responder [Unknown]
  - Therapy partial responder [Unknown]
  - Pyrexia [Unknown]
